FAERS Safety Report 5890668-5 (Version None)
Quarter: 2008Q3

REPORT INFORMATION
  Report Type: 
  Country: None (occurrence: None)
  Receive Date: 20080922
  Receipt Date: 20080912
  Transmission Date: 20090109
  Serious: Yes (Death, Other)
  Sender: FDA-Public Use
  Company Number: US-BAYER-200826342GPV

PATIENT

DRUGS (7)
  1. CAMPATH [Suspect]
     Indication: TRANSPLANT REJECTION
     Dosage: UNIT DOSE: 30 MG
     Route: 042
  2. METHYLPREDNISOLONE [Suspect]
     Indication: PREMEDICATION
     Route: 065
  3. THYMOGLOBULIN [Suspect]
     Indication: BONE MARROW CONDITIONING REGIMEN
     Route: 065
  4. TACROLIMUS [Suspect]
     Indication: PROPHYLAXIS AGAINST GRAFT VERSUS HOST DISEASE
     Route: 065
  5. SIROLIMUS [Suspect]
     Indication: TRANSPLANT REJECTION
  6. MYCOPHENOLATE MOFETIL [Suspect]
     Indication: TRANSPLANT REJECTION
  7. IMMUNE GLOBULIN INTRAVENOUS (HUMAN) [Suspect]
     Indication: TRANSPLANT REJECTION
     Route: 042

REACTIONS (16)
  - B-CELL LYMPHOMA [None]
  - BACTERIAL SEPSIS [None]
  - BK VIRUS INFECTION [None]
  - CARDIOVASCULAR DISORDER [None]
  - CYTOMEGALOVIRUS INFECTION [None]
  - DEATH [None]
  - INFECTION [None]
  - MYELOMA RECURRENCE [None]
  - PARAPROTEINAEMIA [None]
  - PNEUMONIA [None]
  - RENAL HAEMORRHAGE [None]
  - RESPIRATORY FAILURE [None]
  - TENOSYNOVITIS [None]
  - TORULOPSIS INFECTION [None]
  - TUBERCULOSIS [None]
  - URINARY TRACT INFECTION [None]
